FAERS Safety Report 17334124 (Version 3)
Quarter: 2020Q1

REPORT INFORMATION
  Report Type: Report from Study
  Country: US (occurrence: US)
  Receive Date: 20200128
  Receipt Date: 20200302
  Transmission Date: 20200409
  Serious: Yes (Hospitalization)
  Sender: FDA-Public Use
  Company Number: US-BRISTOL-MYERS SQUIBB COMPANY-BMS-2020-005867

PATIENT
  Age: 54 Year
  Sex: Male
  Weight: 68.9 kg

DRUGS (2)
  1. IPILIMUMAB [Suspect]
     Active Substance: IPILIMUMAB
     Indication: NEUROENDOCRINE CARCINOMA
     Dosage: 1 MG/KG IV ON DAY 1
     Route: 042
     Dates: start: 20191018
  2. NIVOLUMAB [Suspect]
     Active Substance: NIVOLUMAB
     Indication: NEUROENDOCRINE CARCINOMA
     Dosage: 240MG IV ON DAYS 1, 15, AND 29
     Route: 042
     Dates: start: 20191018

REACTIONS (2)
  - Confusional state [Recovered/Resolved]
  - Lethargy [Recovered/Resolved]

NARRATIVE: CASE EVENT DATE: 20191029
